FAERS Safety Report 9504776 (Version 2)
Quarter: 2013Q3

REPORT INFORMATION
  Report Type: Spontaneous
  Country: US (occurrence: US)
  Receive Date: 20130906
  Receipt Date: 20130906
  Transmission Date: 20140515
  Serious: No
  Sender: FDA-Public Use
  Company Number: US-ASTRAZENECA-2013SE40611

PATIENT
  Age: 69 Year
  Sex: Female
  Weight: 93.4 kg

DRUGS (3)
  1. SYMBICORT [Suspect]
     Indication: CHRONIC OBSTRUCTIVE PULMONARY DISEASE
     Dosage: 160/4.5 MCG 2 PUFFS BID
     Route: 055
     Dates: start: 201303
  2. LISINOPRIL/HCTZ [Suspect]
     Dosage: 12.5 MG AND 25 MG DAILY
     Route: 048
  3. AMLOPODINE [Concomitant]

REACTIONS (2)
  - Cough [Unknown]
  - Drug dose omission [Unknown]
